FAERS Safety Report 24019853 (Version 1)
Quarter: 2024Q2

REPORT INFORMATION
  Report Type: Spontaneous
  Country: US (occurrence: None)
  Receive Date: 20240626
  Receipt Date: 20240626
  Transmission Date: 20240716
  Serious: No
  Sender: FDA-Public Use
  Company Number: None

PATIENT
  Sex: Female

DRUGS (7)
  1. VILAZODONE [Suspect]
     Active Substance: VILAZODONE
     Indication: Depression
  2. METHOCARBAMOL [Concomitant]
  3. TYLENOL [Concomitant]
  4. IBUPROFEN [Concomitant]
  5. DICLOFENAC [Concomitant]
  6. DANDELION ROOT [Concomitant]
  7. APPLE CIDER VINEGAR [Concomitant]
     Active Substance: APPLE CIDER VINEGAR

REACTIONS (2)
  - Abdominal distension [None]
  - Flatulence [None]
